FAERS Safety Report 9657739 (Version 2)
Quarter: 2013Q4

REPORT INFORMATION
  Report Type: Spontaneous
  Country: IT (occurrence: None)
  Receive Date: 20131029
  Receipt Date: 20131220
  Transmission Date: 20140711
  Serious: Yes (Hospitalization)
  Sender: FDA-Public Use
  Company Number: AUR-APL-2013-08950

PATIENT
  Age: 61 Year
  Sex: Female

DRUGS (3)
  1. SERTRALINE (SERTRALINE) [Suspect]
     Indication: DEPRESSION
     Dosage: 100MG (100MG, 1 IN 1 D) ORAL
     Route: 048
     Dates: start: 20120101, end: 20131003
  2. TAVOR (LORAZEPAM) [Suspect]
     Indication: DEPRESSION
     Dosage: 2.5MG (2.5MG, 1 IN 1 D), ORAL
     Route: 048
     Dates: start: 20120101, end: 20131003
  3. TALOFEN [Suspect]
     Indication: DEPRESSION
     Dosage: 50GTT (50GTT, 1 IN 1 D) ORAL
     Route: 048
     Dates: start: 20120101, end: 20131003

REACTIONS (4)
  - Hypochloraemia [None]
  - Hyponatraemia [None]
  - Conduct disorder [None]
  - Toxic encephalopathy [None]
